FAERS Safety Report 8345513-5 (Version None)
Quarter: 2012Q2

REPORT INFORMATION
  Report Type: 
  Country: None (occurrence: None)
  Receive Date: 20120508
  Receipt Date: 20120424
  Transmission Date: 20120825
  Serious: Yes (Hospitalization)
  Sender: FDA-Public Use
  Company Number: FR-VALEANT-2012VX001941

PATIENT
  Age: 70 Year
  Sex: Male

DRUGS (6)
  1. TAXOTERE [Suspect]
     Route: 065
     Dates: start: 20110207
  2. ELOXATIN [Suspect]
     Route: 065
     Dates: start: 20110207
  3. FLUOROURACIL [Suspect]
     Route: 065
     Dates: start: 20110207
  4. ELOXATIN [Suspect]
     Route: 065
     Dates: start: 20110225, end: 20110227
  5. FLUOROURACIL [Suspect]
     Route: 065
     Dates: start: 20110225, end: 20110227
  6. TAXOTERE [Suspect]
     Route: 065
     Dates: start: 20110225, end: 20110227

REACTIONS (12)
  - PHARYNGEAL ERYTHEMA [None]
  - GLOSSODYNIA [None]
  - CHILLS [None]
  - COUGH [None]
  - NEUTROPENIA [None]
  - ABDOMINAL DISTENSION [None]
  - SYSTEMIC INFLAMMATORY RESPONSE SYNDROME [None]
  - PULMONARY SEPSIS [None]
  - DIARRHOEA [None]
  - HEPATIC CIRRHOSIS [None]
  - PYREXIA [None]
  - FEBRILE BONE MARROW APLASIA [None]
